FAERS Safety Report 24791638 (Version 2)
Quarter: 2025Q1

REPORT INFORMATION
  Report Type: Report from Study
  Country: US (occurrence: US)
  Receive Date: 20241231
  Receipt Date: 20250110
  Transmission Date: 20250409
  Serious: No
  Sender: SUNOVION
  Company Number: US-SUMITOMO PHARMA SWITZERLAND GMBH-2024SPA006184

PATIENT

DRUGS (3)
  1. ORGOVYX [Suspect]
     Active Substance: RELUGOLIX
     Indication: Prostate cancer
     Dosage: 360 MG, SINGLE
     Route: 048
     Dates: start: 20241112, end: 20241112
  2. ORGOVYX [Suspect]
     Active Substance: RELUGOLIX
     Dosage: 120 MG, QD
     Route: 048
     Dates: start: 20241113
  3. ABIRATERONE [Suspect]
     Active Substance: ABIRATERONE
     Route: 065
     Dates: start: 20241114

REACTIONS (6)
  - Blood creatinine increased [Unknown]
  - White blood cell count decreased [Unknown]
  - Urine output decreased [Unknown]
  - Red blood cell count decreased [Not Recovered/Not Resolved]
  - Diarrhoea [Recovered/Resolved]
  - Hot flush [Unknown]
